FAERS Safety Report 7496033-1 (Version None)
Quarter: 2011Q2

REPORT INFORMATION
  Report Type: 
  Country: None (occurrence: None)
  Receive Date: 20110513
  Receipt Date: 20110503
  Transmission Date: 20111010
  Serious: Yes (Other)
  Sender: FDA-Public Use
  Company Number: MIN-00720

PATIENT
  Age: 23 Year
  Sex: Female
  Weight: 68.0396 kg

DRUGS (1)
  1. MINOCYCLINE HYDROCHLORIDE [Suspect]
     Indication: ACNE
     Dosage: 100 MG, 1 TABLET TWICE A DAY, ORALLY
     Route: 048
     Dates: start: 20070901, end: 20091229

REACTIONS (1)
  - BENIGN INTRACRANIAL HYPERTENSION [None]
